FAERS Safety Report 9961233 (Version 1)
Quarter: 2014Q1

REPORT INFORMATION
  Report Type: Spontaneous
  Country: ES (occurrence: ES)
  Receive Date: 20140305
  Receipt Date: 20140305
  Transmission Date: 20141002
  Serious: Yes (Life-Threatening)
  Sender: FDA-Public Use
  Company Number: ES-BAYER-2014-031256

PATIENT
  Age: 68 Year
  Sex: Female

DRUGS (1)
  1. ULTRAVIST [Suspect]
     Indication: SCAN WITH CONTRAST
     Dosage: 50 ML, ONCE
     Route: 013
     Dates: start: 20140225, end: 20140225

REACTIONS (4)
  - Monoparesis [Recovering/Resolving]
  - Monoplegia [Recovering/Resolving]
  - Dysarthria [Recovering/Resolving]
  - Pyrexia [Recovering/Resolving]
